FAERS Safety Report 7030421-2 (Version None)
Quarter: 2010Q4

REPORT INFORMATION
  Report Type: 
  Country: None (occurrence: None)
  Receive Date: 20101001
  Receipt Date: 20100928
  Transmission Date: 20110411
  Serious: Yes (Disabling)
  Sender: FDA-Public Use
  Company Number: 2010SP030843

PATIENT
  Age: 35 Year
  Sex: Female

DRUGS (1)
  1. IMPLANON [Suspect]
     Indication: PRODUCT USED FOR UNKNOWN INDICATION
     Dosage: 1 DF
     Dates: end: 20100618

REACTIONS (9)
  - COMPLICATION OF DEVICE REMOVAL [None]
  - DEVICE DISLOCATION [None]
  - HEADACHE [None]
  - IMPLANT SITE INDURATION [None]
  - IMPLANT SITE PAIN [None]
  - MOVEMENT DISORDER [None]
  - PERIPHERAL NERVE LESION [None]
  - TENDON DISORDER [None]
  - WEIGHT INCREASED [None]
